FAERS Safety Report 7412561-9 (Version None)
Quarter: 2011Q2

REPORT INFORMATION
  Report Type: 
  Country: None (occurrence: None)
  Receive Date: 20110408
  Receipt Date: 20110408
  Transmission Date: 20111010
  Serious: Yes (Death, Life-Threatening, Hospitalization, Disabling, Congenital Anomaly, Other)
  Sender: FDA-Public Use
  Company Number: None

PATIENT
  Age: 16 Year
  Sex: Male
  Weight: 79.3795 kg

DRUGS (2)
  1. AMITRIPTYLINE HCL [Suspect]
     Indication: MIGRAINE
     Dosage: 1 TABLET BEDTIME PO
     Route: 048
     Dates: start: 20100301, end: 20100828
  2. TOPAMAX [Suspect]
     Indication: MIGRAINE
     Dosage: 1 TABLET 2 TIMES A DAY PO
     Route: 048
     Dates: start: 20100301, end: 20100828

REACTIONS (4)
  - PALPITATIONS [None]
  - DYSPNOEA [None]
  - PRESYNCOPE [None]
  - CHEST PAIN [None]
